FAERS Safety Report 6011980-5 (Version None)
Quarter: 2008Q4

REPORT INFORMATION
  Report Type: 
  Country: None (occurrence: None)
  Receive Date: 20081218
  Receipt Date: 20081020
  Transmission Date: 20090506
  Serious: No
  Sender: FDA-Public Use
  Company Number: US-ASTRAZENECA-2008UW23115

PATIENT
  Age: 85 Year
  Sex: Male
  Weight: 81.2 kg

DRUGS (6)
  1. CRESTOR [Suspect]
     Indication: BLOOD CHOLESTEROL INCREASED
     Route: 048
     Dates: start: 20081015
  2. ASPIRIN [Concomitant]
  3. REQUIP [Concomitant]
     Dosage: THREE TIMES A DAY
  4. PAXIL CR [Concomitant]
     Dosage: DAILY
  5. QUINAPRIL [Concomitant]
  6. COREG [Concomitant]
     Dosage: DAILY

REACTIONS (2)
  - BLOOD GLUCOSE DECREASED [None]
  - CHILLS [None]
